FAERS Safety Report 8334891-9 (Version None)
Quarter: 2012Q2

REPORT INFORMATION
  Report Type: 
  Country: None (occurrence: None)
  Receive Date: 20120503
  Receipt Date: 20120419
  Transmission Date: 20120825
  Serious: Yes (Hospitalization, Other)
  Sender: FDA-Public Use
  Company Number: DE-CELGENEUS-062-50794-12042221

PATIENT
  Age: 68 Year
  Sex: Female
  Weight: 70 kg

DRUGS (4)
  1. VIDAZA [Suspect]
     Dosage: 135 MILLIGRAM
     Route: 058
     Dates: start: 20120123, end: 20120131
  2. LEVOTHYROXINE SODIUM [Concomitant]
     Dosage: 100 MICROGRAM
     Route: 065
  3. VIDAZA [Suspect]
     Dosage: 135 MILLIGRAM
     Route: 058
     Dates: start: 20120220, end: 20120221
  4. VIDAZA [Suspect]
     Dosage: 70 MILLIGRAM
     Route: 058
     Dates: start: 20120221, end: 20120228

REACTIONS (7)
  - NEUTROPENIA [None]
  - GENERAL PHYSICAL HEALTH DETERIORATION [None]
  - THROMBOCYTOPENIA [None]
  - BREAST CANCER RECURRENT [None]
  - FAT NECROSIS [None]
  - GLOMERULONEPHRITIS [None]
  - PNEUMONIA [None]
